FAERS Safety Report 5021148-7 (Version None)
Quarter: 2006Q2

REPORT INFORMATION
  Report Type: 
  Country: None (occurrence: None)
  Receive Date: 20060608
  Receipt Date: 20060531
  Transmission Date: 20061013
  Serious: Yes (Hospitalization)
  Sender: FDA-Public Use
  Company Number: 2006AP02432

PATIENT
  Age: 21169 Day
  Sex: Female
  Weight: 68 kg

DRUGS (6)
  1. OMEPRAZOLE [Suspect]
     Route: 048
     Dates: start: 20060101
  2. AZATHIOPRINE [Concomitant]
     Indication: COMPLICATIONS OF TRANSPLANT SURGERY
  3. PREDNISOLONE [Concomitant]
     Indication: COMPLICATIONS OF TRANSPLANT SURGERY
  4. PRINIVIL [Concomitant]
     Indication: ESSENTIAL HYPERTENSION
  5. KEFLEX [Concomitant]
     Indication: URINARY TRACT DISORDER
  6. EVISTA [Concomitant]
     Indication: MENOPAUSAL SYMPTOMS

REACTIONS (2)
  - RENAL FAILURE ACUTE [None]
  - TUBULOINTERSTITIAL NEPHRITIS [None]
